FAERS Safety Report 6120764-9 (Version None)
Quarter: 2009Q1

REPORT INFORMATION
  Report Type: 
  Country: None (occurrence: None)
  Receive Date: 20090317
  Receipt Date: 20090309
  Transmission Date: 20090719
  Serious: Yes (Hospitalization)
  Sender: FDA-Public Use
  Company Number: NZ-BAYER-200915709GPV

PATIENT
  Age: 42 Year
  Sex: Female

DRUGS (2)
  1. MIRENA [Suspect]
     Indication: ENDOMETRIOSIS
     Route: 015
     Dates: start: 20040101, end: 20090201
  2. MIRENA [Suspect]
     Route: 015
     Dates: start: 20090201

REACTIONS (3)
  - AMENORRHOEA [None]
  - DEPRESSION [None]
  - SUICIDE ATTEMPT [None]
